FAERS Safety Report 13187076 (Version 1)
Quarter: 2017Q1

REPORT INFORMATION
  Report Type: Report from Study
  Country: US (occurrence: US)
  Receive Date: 20170206
  Receipt Date: 20170206
  Transmission Date: 20170428
  Serious: Yes (Other)
  Sender: FDA-Public Use
  Company Number: US-ROCHE-1886673

PATIENT

DRUGS (1)
  1. PEG-INTERFERON ALFA 2A [Suspect]
     Active Substance: PEGINTERFERON ALFA-2A
     Indication: MYELOPROLIFERATIVE NEOPLASM
     Dosage: RANGE OF DOSE: 45-90 MG/WEEK
     Route: 058

REACTIONS (9)
  - Mood altered [Unknown]
  - Peripheral sensory neuropathy [Unknown]
  - Myalgia [Unknown]
  - Anaemia [Unknown]
  - Rash [Unknown]
  - Leukopenia [Unknown]
  - Fatigue [Unknown]
  - Transaminases increased [Unknown]
  - Thrombocytopenia [Unknown]
